FAERS Safety Report 5277273-9 (Version None)
Quarter: 2007Q1

REPORT INFORMATION
  Report Type: 
  Country: None (occurrence: None)
  Receive Date: 20070327
  Receipt Date: 20070320
  Transmission Date: 20070707
  Serious: Yes (Life-Threatening, Hospitalization, Disabling)
  Sender: FDA-Public Use
  Company Number: JP-JPN-A200700849

PATIENT
  Age: 58 Year
  Sex: Female
  Weight: 57 kg

DRUGS (3)
  1. VALTREX [Suspect]
     Indication: HERPES ZOSTER
     Dosage: 1000MG THREE TIMES PER DAY
     Route: 048
     Dates: start: 20070219, end: 20070221
  2. LEVOFLOXACIN [Concomitant]
     Indication: INFECTION PROPHYLAXIS
     Dates: start: 20070221, end: 20070221
  3. ARASENA-A [Concomitant]
     Indication: HERPES ZOSTER
     Route: 042
     Dates: start: 20070222, end: 20070222

REACTIONS (7)
  - ANOREXIA [None]
  - HEADACHE [None]
  - MICTURITION FREQUENCY DECREASED [None]
  - NAUSEA [None]
  - PYREXIA [None]
  - RENAL FAILURE ACUTE [None]
  - URINE OUTPUT DECREASED [None]
